FAERS Safety Report 5161543-9 (Version None)
Quarter: 2006Q4

REPORT INFORMATION
  Report Type: 
  Country: None (occurrence: None)
  Receive Date: 20061130
  Receipt Date: 20060907
  Transmission Date: 20070319
  Serious: No
  Sender: FDA-Public Use
  Company Number: US-GLAXOSMITHKLINE-A0619387A

PATIENT
  Age: 28 Year
  Sex: Female

DRUGS (6)
  1. WELLBUTRIN XL [Suspect]
     Indication: DEPRESSION
     Dosage: 300MG PER DAY
     Route: 048
     Dates: start: 20060101
  2. ALCOHOL [Suspect]
     Indication: DRUG USE FOR UNKNOWN INDICATION
     Route: 048
  3. LEXAPRO [Concomitant]
  4. LORAZEPAM [Concomitant]
  5. AMBIEN [Concomitant]
  6. YASMIN [Concomitant]

REACTIONS (2)
  - ALCOHOL INTOLERANCE [None]
  - VOMITING [None]
